FAERS Safety Report 23116592 (Version 2)
Quarter: 2023Q4

REPORT INFORMATION
  Report Type: Spontaneous
  Country: DE (occurrence: None)
  Receive Date: 20231027
  Receipt Date: 20231110
  Transmission Date: 20240109
  Serious: Yes (Other)
  Sender: FDA-Public Use
  Company Number: 2023A243059

PATIENT
  Age: 50 Year
  Sex: Female

DRUGS (9)
  1. QUETIAPINE [Suspect]
     Active Substance: QUETIAPINE
     Route: 048
     Dates: start: 20230928, end: 20230928
  2. CANDESARTAN [Suspect]
     Active Substance: CANDESARTAN
     Dosage: UNKNOWN QUANTITY OF TABLET(S) (MAINTENANCE MEDICATION), ORAL, QUESTIONABLE EXPOSURE
     Route: 048
     Dates: start: 20230928, end: 20230928
  3. VALPROATE SODIUM [Suspect]
     Active Substance: VALPROATE SODIUM
     Dosage: UNKNOWN QUANTITY OF TABLET(S) (MAINTENANCE MEDICATION), ORAL, QUESTIONABLE EXPOSURE
     Route: 048
     Dates: start: 20230928, end: 20230928
  4. PIPAMPERONE [Suspect]
     Active Substance: PIPAMPERONE
     Dosage: 2 TABLET 1 ONLY (MIX UP)
     Dates: start: 20230928, end: 20230928
  5. DULOXETINE [Suspect]
     Active Substance: DULOXETINE
     Dosage: UNKNOWN QUANTITY OF TABLET(S) (MAINTENANCE MEDICATION), ORAL, QUESTIONABLE EXPOSURE
     Route: 048
     Dates: start: 20230928, end: 20230928
  6. AMLODIPINE [Suspect]
     Active Substance: AMLODIPINE BESYLATE
     Dosage: 1 ONLY
     Dates: start: 20230928, end: 20230928
  7. SULPIRIDE [Suspect]
     Active Substance: SULPIRIDE
     Dosage: UNKNOWN QUANTITY OF TABLET(S) (MAINTENANCE MEDICATION), ORAL, QUESTIONABLE EXPOSURE
     Route: 048
     Dates: start: 20230928, end: 20230928
  8. ELIQUIS [Suspect]
     Active Substance: APIXABAN
     Dates: start: 20230928, end: 20230928
  9. CHOLECALCIFEROL [Suspect]
     Active Substance: CHOLECALCIFEROL
     Dates: start: 20230928, end: 20230928

REACTIONS (5)
  - Hypotension [Unknown]
  - Syncope [Unknown]
  - Suicide attempt [Unknown]
  - Somnolence [Unknown]
  - Electrocardiogram QT prolonged [Unknown]

NARRATIVE: CASE EVENT DATE: 20230928
